FAERS Safety Report 11536587 (Version 1)
Quarter: 2015Q3

REPORT INFORMATION
  Report Type: Spontaneous
  Country: PR (occurrence: PR)
  Receive Date: 20150922
  Receipt Date: 20150922
  Transmission Date: 20151125
  Serious: Yes (Death, Hospitalization)
  Sender: FDA-Public Use
  Company Number: PR-FRI-1000079535

PATIENT
  Sex: Male

DRUGS (10)
  1. ATORVASTATIN [Concomitant]
     Active Substance: ATORVASTATIN
  2. DEPAKOTE [Concomitant]
     Active Substance: DIVALPROEX SODIUM
     Dosage: 250 MG
  3. OMEGA [Concomitant]
     Active Substance: CONVALLARIA MAJALIS\CRATAEGUS LAEVIGATA LEAF\PROXYPHYLLINE
  4. ENALAPRIL [Concomitant]
     Active Substance: ENALAPRIL
  5. KLONOPIN [Concomitant]
     Active Substance: CLONAZEPAM
     Indication: DEMENTIA ALZHEIMER^S TYPE
  6. NAMENDA [Suspect]
     Active Substance: MEMANTINE HYDROCHLORIDE
     Indication: DEMENTIA ALZHEIMER^S TYPE
     Dosage: 10 MG
     Dates: start: 2014, end: 20150721
  7. DEPAKOTE [Concomitant]
     Active Substance: DIVALPROEX SODIUM
     Indication: DEMENTIA ALZHEIMER^S TYPE
     Dosage: 500 MG
  8. VITAMIN C [Concomitant]
     Active Substance: ASCORBIC ACID
  9. VITAMIN A [Concomitant]
     Active Substance: VITAMIN A
  10. LEVOTRIN [Concomitant]
     Indication: HYPOTHYROIDISM
     Dosage: 75 MG

REACTIONS (1)
  - Cardiac disorder [Fatal]
